FAERS Safety Report 9509263 (Version 1)
Quarter: 2013Q3

REPORT INFORMATION
  Report Type: Spontaneous
  Country: US (occurrence: US)
  Receive Date: 20130909
  Receipt Date: 20130909
  Transmission Date: 20140515
  Serious: Yes (Hospitalization, Other)
  Sender: FDA-Public Use
  Company Number: US-ELI_LILLY_AND_COMPANY-US201309001381

PATIENT
  Sex: Female

DRUGS (5)
  1. HUMALOG LISPRO [Suspect]
     Indication: TYPE 1 DIABETES MELLITUS
     Dosage: UNK UNK, OTHER
     Route: 058
     Dates: start: 2000
  2. HUMALOG LISPRO [Suspect]
     Dosage: UNK UNK, OTHER
     Route: 058
  3. GLUMETZA [Concomitant]
     Indication: TYPE 1 DIABETES MELLITUS
  4. LOSARTAN [Concomitant]
     Indication: PROPHYLAXIS
  5. BABY ASPIRIN [Concomitant]

REACTIONS (5)
  - Ketoacidosis [Recovered/Resolved]
  - Ketoacidosis [Unknown]
  - Blood glucose increased [Unknown]
  - Drug ineffective [Unknown]
  - Drug ineffective [Recovered/Resolved]
